FAERS Safety Report 5244372-7 (Version None)
Quarter: 2007Q1

REPORT INFORMATION
  Report Type: 
  Country: None (occurrence: None)
  Receive Date: 20070222
  Receipt Date: 20070213
  Transmission Date: 20070707
  Serious: Yes (Disabling, Other)
  Sender: FDA-Public Use
  Company Number: US-PFIZER INC-2007012946

PATIENT
  Sex: Female
  Weight: 60.3 kg

DRUGS (6)
  1. ZOLOFT [Suspect]
     Indication: PAIN
  2. LYRICA [Suspect]
     Indication: INTERVERTEBRAL DISC DISORDER
  3. ZANAFLEX [Concomitant]
  4. NAPROSYN [Concomitant]
  5. ALL OTHER THERAPEUTIC PRODUCTS [Concomitant]
  6. OMEGA 3 [Concomitant]

REACTIONS (3)
  - CATARACT OPERATION [None]
  - SIGHT DISABILITY [None]
  - VISUAL FIELD DEFECT [None]
